FAERS Safety Report 26025765 (Version 1)
Quarter: 2025Q4

REPORT INFORMATION
  Report Type: Spontaneous
  Country: EU (occurrence: EU)
  Receive Date: 20251111
  Receipt Date: 20251111
  Transmission Date: 20260117
  Serious: Yes (Other)
  Sender: TEVA
  Company Number: None

PATIENT
  Age: 32 Year
  Sex: Male

DRUGS (3)
  1. VINCRISTINE [Suspect]
     Active Substance: VINCRISTINE
     Indication: Astrocytoma
     Dosage: TIME INTERVAL: CYCLICAL: J 8 J 29; VINCRISTINE SULFATE
     Route: 042
     Dates: start: 20250108
  2. LOMUSTINE [Suspect]
     Active Substance: LOMUSTINE
     Indication: Astrocytoma
     Dosage: TIME INTERVAL: CYCLICAL: 200 MG/CYCLE J1
     Route: 048
     Dates: start: 20241231
  3. PROCARBAZINE HYDROCHLORIDE [Suspect]
     Active Substance: PROCARBAZINE HYDROCHLORIDE
     Indication: Astrocytoma
     Dosage: 100 MG/ J8 J21
     Route: 048
     Dates: start: 20250108

REACTIONS (1)
  - Hepatic cytolysis [Recovering/Resolving]

NARRATIVE: CASE EVENT DATE: 20250624
